FAERS Safety Report 19355059 (Version 2)
Quarter: 2021Q2

REPORT INFORMATION
  Report Type: Report from Study
  Country: US (occurrence: US)
  Receive Date: 20210531
  Receipt Date: 20210624
  Transmission Date: 20210717
  Serious: No
  Sender: FDA-Public Use
  Company Number: NVSC2021US121966

PATIENT
  Sex: Female

DRUGS (1)
  1. ENTRESTO [Suspect]
     Active Substance: SACUBITRIL\VALSARTAN
     Indication: PRODUCT USED FOR UNKNOWN INDICATION
     Dosage: 49.51 MG, BID
     Route: 048
     Dates: start: 202005

REACTIONS (4)
  - Memory impairment [Unknown]
  - Dizziness [Unknown]
  - Visual impairment [Unknown]
  - Eye pain [Unknown]
